FAERS Safety Report 8903444 (Version 1)
Quarter: 2012Q4

REPORT INFORMATION
  Report Type: 
  Country: MX (occurrence: MX)
  Receive Date: 20121113
  Receipt Date: 20121113
  Transmission Date: 20130627
  Serious: Yes (Hospitalization, Other)
  Sender: FDA-Public Use
  Company Number: PHHY2012MX104280

PATIENT
  Sex: Female

DRUGS (2)
  1. CO-DIOVAN [Suspect]
     Indication: HYPERTENSION
     Dosage: 1 DF, (80/12.5 mg) daily
     Dates: start: 20120110, end: 20121023
  2. ARTRENAC [Concomitant]
     Dosage: 1 DF, daily

REACTIONS (5)
  - Perforated ulcer [Not Recovered/Not Resolved]
  - Haematemesis [Not Recovered/Not Resolved]
  - Nausea [Not Recovered/Not Resolved]
  - Cardiac fibrillation [Not Recovered/Not Resolved]
  - Dizziness [Not Recovered/Not Resolved]
